FAERS Safety Report 15001245 (Version 3)
Quarter: 2018Q3

REPORT INFORMATION
  Report Type: Spontaneous
  Country: US (occurrence: US)
  Receive Date: 20180612
  Receipt Date: 20180904
  Transmission Date: 20181010
  Serious: No
  Sender: FDA-Public Use
  Company Number: US-BAYER-2018-110862

PATIENT
  Age: 29 Year
  Sex: Female
  Weight: 64.4 kg

DRUGS (10)
  1. BETADINE [Concomitant]
     Active Substance: POVIDONE-IODINE
     Indication: INFECTION PROPHYLAXIS
     Dosage: UNK
     Route: 061
     Dates: start: 20180605, end: 20180605
  2. MIRENA [Suspect]
     Active Substance: LEVONORGESTREL
     Indication: CONTRACEPTION
     Dosage: 20 MCG/24HR, CONT
     Route: 015
     Dates: start: 201304, end: 20180530
  3. LIDOCAINE. [Concomitant]
     Active Substance: LIDOCAINE
     Indication: ANAESTHESIA
     Dosage: UNK
     Dates: start: 20180530, end: 20180530
  4. LIDOCAINE. [Concomitant]
     Active Substance: LIDOCAINE
     Indication: ANAESTHESIA
     Dosage: UNK
     Dates: start: 20180530, end: 20180530
  5. ONDANSETRON [Concomitant]
     Active Substance: ONDANSETRON
     Dosage: EVERY 4 HOUR PRN
     Route: 048
     Dates: start: 20170520
  6. ALPRAZOLAM. [Concomitant]
     Active Substance: ALPRAZOLAM
     Dosage: 1 DF, ONCE
     Route: 048
     Dates: start: 20180605, end: 20180605
  7. MIRENA [Suspect]
     Active Substance: LEVONORGESTREL
     Indication: CONTRACEPTION
     Dosage: 20 MCG/24HR, CONT
     Route: 015
     Dates: start: 20180605
  8. LIDOCAINE. [Concomitant]
     Active Substance: LIDOCAINE
     Indication: ANAESTHESIA
     Dosage: UNK
     Dates: start: 20180605, end: 20180605
  9. BETADINE [Concomitant]
     Active Substance: POVIDONE-IODINE
     Indication: INFECTION PROPHYLAXIS
     Dosage: UNK
     Route: 061
     Dates: start: 20180530, end: 20180530
  10. CYTOTEC [Concomitant]
     Active Substance: MISOPROSTOL
     Indication: ANALGESIC THERAPY
     Dosage: 1 DF, ONCE
     Route: 067
     Dates: start: 20180604, end: 20180604

REACTIONS (6)
  - Weight increased [None]
  - Skin candida [None]
  - Amenorrhoea [None]
  - Device use issue [None]
  - Procedural pain [Recovered/Resolved]
  - Device issue [None]

NARRATIVE: CASE EVENT DATE: 2013
